FAERS Safety Report 5163914-3 (Version None)
Quarter: 2006Q4

REPORT INFORMATION
  Report Type: 
  Country: None (occurrence: None)
  Receive Date: 20061204
  Receipt Date: 20061127
  Transmission Date: 20070319
  Serious: Yes (Life-Threatening)
  Sender: FDA-Public Use
  Company Number: 2006AC02237

PATIENT
  Age: 87 Year
  Sex: Female
  Weight: 50 kg

DRUGS (8)
  1. LIDOCAINE [Suspect]
     Indication: EPIDURAL ANAESTHESIA
     Route: 008
  2. OXYGEN [Concomitant]
     Route: 045
  3. MIDAZOLAM [Concomitant]
     Route: 042
  4. BENAZEPRIL HYDROCHLORIDE [Concomitant]
  5. AMLODIPINE [Concomitant]
  6. PROPAFENONE HCL [Concomitant]
  7. DIGOXIN [Concomitant]
  8. COUMADIN [Concomitant]

REACTIONS (4)
  - BLOOD PRESSURE DECREASED [None]
  - DIZZINESS [None]
  - MUSCULAR WEAKNESS [None]
  - RESPIRATORY DISTRESS [None]
